FAERS Safety Report 12880144 (Version 1)
Quarter: 2016Q4

REPORT INFORMATION
  Report Type: Report from Study
  Country: DK (occurrence: DK)
  Receive Date: 20161025
  Receipt Date: 20161025
  Transmission Date: 20170207
  Serious: Yes (Other)
  Sender: FDA-Public Use
  Company Number: DK-AUROBINDO-AUR-APL-2016-13049

PATIENT
  Age: 74 Year
  Sex: Female

DRUGS (2)
  1. TRAMADOL. [Suspect]
     Active Substance: TRAMADOL
     Indication: PAIN
     Dosage: 100 MG, UNK
     Route: 048
  2. DULOXETINE. [Interacting]
     Active Substance: DULOXETINE
     Indication: DEPRESSION
     Dosage: 60 MG, UNK
     Route: 048

REACTIONS (5)
  - Diarrhoea [Unknown]
  - Drug prescribing error [Unknown]
  - Psychomotor hyperactivity [Unknown]
  - Drug interaction [Unknown]
  - Psychomotor retardation [Unknown]
